FAERS Safety Report 10035995 (Version 2)
Quarter: 2014Q1

REPORT INFORMATION
  Report Type: Spontaneous
  Country: DK (occurrence: DK)
  Receive Date: 20140325
  Receipt Date: 20140325
  Transmission Date: 20141002
  Serious: Yes (Other)
  Sender: FDA-Public Use
  Company Number: DK-ACTAVIS-2013B-01665

PATIENT
  Age: 57 Year
  Sex: Female

DRUGS (7)
  1. EPIRUBICIN ACTAVIS [Suspect]
     Indication: BREAST CANCER
     Dosage: 150 MG, UNKNOWN
     Route: 042
     Dates: start: 20130429
  2. EPIRUBICIN ACTAVIS [Suspect]
     Dosage: 150 MG, UNKNOWN
     Route: 042
     Dates: start: 20130408
  3. EPIRUBICIN ACTAVIS [Suspect]
     Dosage: 150 MG, UNKNOWN
     Route: 042
     Dates: start: 20130521
  4. SENDOXAN [Suspect]
     Indication: BREAST CANCER
     Dosage: 1 G, UNKNOWN
     Route: 042
     Dates: start: 20130429
  5. SENDOXAN [Suspect]
     Dosage: 1 G, UNKNOWN;
     Route: 042
     Dates: start: 20130408, end: 20130521
  6. SENDOXAN [Suspect]
     Dosage: 1 G, UNKNOWN
     Route: 042
     Dates: start: 20130521
  7. SIMVASTATIN ACTAVIS [Concomitant]
     Indication: HYPERCHOLESTEROLAEMIA
     Dosage: UNK
     Route: 048

REACTIONS (3)
  - Local swelling [Recovered/Resolved]
  - Hypersensitivity [Recovered/Resolved]
  - Pharyngeal oedema [Recovered/Resolved]
